FAERS Safety Report 6260268-6 (Version None)
Quarter: 2009Q3

REPORT INFORMATION
  Report Type: 
  Country: None (occurrence: None)
  Receive Date: 20090706
  Receipt Date: 20090625
  Transmission Date: 20100115
  Serious: Yes (Congenital Anomaly)
  Sender: FDA-Public Use
  Company Number: 09DE001182

PATIENT
  Sex: Female

DRUGS (2)
  1. PAROXETINE                 UNKNOWN [Suspect]
     Indication: DEPRESSION
     Dosage: 10-20 MG, QD, TRANSPLACENTAL
     Route: 064
     Dates: start: 20080101
  2. CLOMIPRAMINE HCL [Concomitant]

REACTIONS (3)
  - HAEMANGIOMA CONGENITAL [None]
  - LIPOMENINGOCELE [None]
  - MATERNAL DRUGS AFFECTING FOETUS [None]
